FAERS Safety Report 13515287 (Version 1)
Quarter: 2017Q2

REPORT INFORMATION
  Report Type: Report from Study
  Country: US (occurrence: US)
  Receive Date: 20170504
  Receipt Date: 20170504
  Transmission Date: 20170830
  Serious: No
  Sender: FDA-Public Use
  Company Number: US-ARIAD PHARMACEUTICALS, INC-2017US008149

PATIENT
  Sex: Male
  Weight: 122 kg

DRUGS (1)
  1. ICLUSIG [Suspect]
     Active Substance: PONATINIB
     Indication: MYELOID LEUKAEMIA
     Dosage: 15 MG, QD
     Route: 048
     Dates: start: 20160408

REACTIONS (8)
  - Pain in extremity [Unknown]
  - Headache [Unknown]
  - Hypoaesthesia [Unknown]
  - Peripheral arterial occlusive disease [Unknown]
  - Paraesthesia [Unknown]
  - Burning sensation [Unknown]
  - Ill-defined disorder [Unknown]
  - Peripheral coldness [Unknown]
